FAERS Safety Report 7521146-5 (Version None)
Quarter: 2011Q2

REPORT INFORMATION
  Report Type: 
  Country: None (occurrence: None)
  Receive Date: 20110603
  Receipt Date: 20101208
  Transmission Date: 20111010
  Serious: Yes (Hospitalization)
  Sender: FDA-Public Use
  Company Number: JP-BAYER-201012699BYL

PATIENT
  Age: 75 Year
  Sex: Male
  Weight: 57 kg

DRUGS (6)
  1. MICARDIS [Concomitant]
     Dosage: SINCE BEFORE ADMINISTRATION
     Route: 048
  2. NEXAVAR [Suspect]
     Indication: HEPATIC NEOPLASM MALIGNANT
     Route: 048
     Dates: start: 20090713, end: 20090726
  3. FAMOTIDINE [Concomitant]
     Dosage: SINCE BEFORE ADMINISTRATION
     Route: 048
  4. GASMOTIN [Concomitant]
     Dosage: SINCE BEFORE ADMINISTRATION
     Route: 048
  5. PROSTAL [Concomitant]
     Dosage: SINCE BEFORE ADMINISTRATION
     Route: 048
  6. TAMSULOSIN HCL [Concomitant]
     Dosage: SINCE BEFORE ADMINISTRATION
     Route: 048

REACTIONS (3)
  - RASH [None]
  - HYPERTENSION [None]
  - MALAISE [None]
